FAERS Safety Report 20071550 (Version 30)
Quarter: 2025Q4

REPORT INFORMATION
  Report Type: Report from Study
  Country: CA (occurrence: CA)
  Receive Date: 20211115
  Receipt Date: 20251013
  Transmission Date: 20260117
  Serious: Yes (Hospitalization, Other)
  Sender: TAKEDA
  Company Number: CA-TAKEDA-2021TUS066893

PATIENT
  Age: 3 Year
  Sex: Female
  Weight: 13 kg

DRUGS (20)
  1. TEDUGLUTIDE [Suspect]
     Active Substance: TEDUGLUTIDE
     Indication: Short-bowel syndrome
     Dosage: 0.6 MILLIGRAM, Q4WEEKS
     Dates: start: 20211025
  2. TEDUGLUTIDE [Suspect]
     Active Substance: TEDUGLUTIDE
     Dosage: 0.6 MILLIGRAM, QD
  3. TEDUGLUTIDE [Suspect]
     Active Substance: TEDUGLUTIDE
     Dosage: 0.6 MILLIGRAM, Q4WEEKS
  4. TEDUGLUTIDE [Suspect]
     Active Substance: TEDUGLUTIDE
     Dosage: UNK UNK, QD
  5. TEDUGLUTIDE [Suspect]
     Active Substance: TEDUGLUTIDE
     Dosage: 0.7 MILLIGRAM, QD
  6. TEDUGLUTIDE [Suspect]
     Active Substance: TEDUGLUTIDE
     Dosage: 0.8 MILLIGRAM, QD
  7. TEDUGLUTIDE [Suspect]
     Active Substance: TEDUGLUTIDE
     Dosage: 0.9 MILLIGRAM, QD
  8. ENOXAPARIN [Suspect]
     Active Substance: ENOXAPARIN
     Indication: Device related thrombosis
     Dosage: UNK
  9. PANTOPRAZOLE SODIUM [Concomitant]
     Active Substance: PANTOPRAZOLE SODIUM
     Dosage: UNK
  10. OMEPRAZOLE [Concomitant]
     Active Substance: OMEPRAZOLE
     Dosage: 6.2 MILLILITER
  11. AMOXICILLIN [Concomitant]
     Active Substance: AMOXICILLIN
     Indication: Eyelid infection
     Dosage: UNK
  12. TPN [Concomitant]
     Active Substance: AMINO ACIDS\DEXTROSE\ELECTROLYTES NOS\SOYBEAN OIL
     Dosage: 875 MILLILITER, QD
     Dates: start: 20211008
  13. TPN [Concomitant]
     Active Substance: AMINO ACIDS\DEXTROSE\ELECTROLYTES NOS\SOYBEAN OIL
     Dosage: 675 MILLILITER, 1/WEEK
     Dates: start: 20211008
  14. TPN [Concomitant]
     Active Substance: AMINO ACIDS\DEXTROSE\ELECTROLYTES NOS\SOYBEAN OIL
     Dosage: 875 MILLILITER, QD
     Dates: start: 20211230
  15. TPN [Concomitant]
     Active Substance: AMINO ACIDS\DEXTROSE\ELECTROLYTES NOS\SOYBEAN OIL
     Dosage: 675 MILLILITER, QD
     Dates: start: 20211230
  16. TPN [Concomitant]
     Active Substance: AMINO ACIDS\DEXTROSE\ELECTROLYTES NOS\SOYBEAN OIL
     Dosage: 675 MILLILITER, QD
     Dates: start: 20220118
  17. TPN [Concomitant]
     Active Substance: AMINO ACIDS\DEXTROSE\ELECTROLYTES NOS\SOYBEAN OIL
     Dosage: 500 MILLILITER, QD
     Dates: start: 20220118
  18. TPN [Concomitant]
     Active Substance: AMINO ACIDS\DEXTROSE\ELECTROLYTES NOS\SOYBEAN OIL
     Dosage: 500 MILLILITER, QD
     Dates: start: 20220215
  19. TPN [Concomitant]
     Active Substance: AMINO ACIDS\DEXTROSE\ELECTROLYTES NOS\SOYBEAN OIL
     Dosage: 300 MILLILITER, QD
     Dates: start: 20220215
  20. TPN [Concomitant]
     Active Substance: AMINO ACIDS\DEXTROSE\ELECTROLYTES NOS\SOYBEAN OIL
     Dosage: 300 MILLILITER, QD
     Dates: end: 20220407

REACTIONS (27)
  - Clostridium difficile infection [Recovered/Resolved]
  - Stoma site erythema [Unknown]
  - Stoma complication [Unknown]
  - Thrombosis in device [Not Recovered/Not Resolved]
  - Vomiting [Recovering/Resolving]
  - Abdominal pain [Not Recovered/Not Resolved]
  - Overgrowth bacterial [Not Recovered/Not Resolved]
  - Body temperature decreased [Unknown]
  - Gastrointestinal stoma output decreased [Recovered/Resolved]
  - Diarrhoea [Unknown]
  - Abnormal faeces [Recovering/Resolving]
  - Faeces discoloured [Recovering/Resolving]
  - Weight decreased [Unknown]
  - Faecal volume decreased [Recovering/Resolving]
  - Respiratory rate decreased [Unknown]
  - Injection site bruising [Not Recovered/Not Resolved]
  - Gastrointestinal stoma output increased [Recovered/Resolved]
  - Protein deficiency [Unknown]
  - Cognitive disorder [Recovering/Resolving]
  - Stoma prolapse [Not Recovered/Not Resolved]
  - Weight increased [Unknown]
  - Dermatitis diaper [Unknown]
  - Carnitine decreased [Unknown]
  - Sinusitis [Unknown]
  - Anxiety [Unknown]
  - Insomnia [Unknown]
  - Nasopharyngitis [Recovering/Resolving]

NARRATIVE: CASE EVENT DATE: 20211026
